FAERS Safety Report 7307746-6 (Version None)
Quarter: 2011Q1

REPORT INFORMATION
  Report Type: 
  Country: None (occurrence: None)
  Receive Date: 20110223
  Receipt Date: 20110210
  Transmission Date: 20110831
  Serious: Yes (Hospitalization, Other)
  Sender: FDA-Public Use
  Company Number: FR-ELI_LILLY_AND_COMPANY-FR201102002728

PATIENT
  Sex: Female

DRUGS (3)
  1. GYNO PEVARYL [Concomitant]
     Indication: FUNGAL INFECTION
     Route: 067
     Dates: start: 20110112, end: 20110115
  2. ZYPREXA [Suspect]
     Dosage: 5 MG, 2/D
     Dates: start: 20110104, end: 20110115
  3. ZYPREXA [Suspect]
     Indication: MENTAL DISORDER
     Dosage: 5 MG, DAILY (1/D)
     Dates: start: 20101101, end: 20110103

REACTIONS (7)
  - ALTERED STATE OF CONSCIOUSNESS [None]
  - HYPERGLYCAEMIA [None]
  - DYSPNOEA [None]
  - GOITRE [None]
  - KETOACIDOSIS [None]
  - TYPE 1 DIABETES MELLITUS [None]
  - PSYCHOMOTOR SKILLS IMPAIRED [None]
